FAERS Safety Report 4637892-7 (Version None)
Quarter: 2005Q2

REPORT INFORMATION
  Report Type: 
  Country: None (occurrence: None)
  Receive Date: 20050328
  Receipt Date: 20050201
  Transmission Date: 20051028
  Serious: No
  Sender: FDA-Public Use
  Company Number: US_0502112377

PATIENT
  Age: 14 Year
  Sex: Male
  Weight: 81 kg

DRUGS (3)
  1. STRATTERA [Suspect]
     Indication: ATTENTION DEFICIT/HYPERACTIVITY DISORDER
     Dosage: 80 MG DAY
     Dates: start: 20030609
  2. ZOMIG [Concomitant]
  3. OMNICEF [Concomitant]

REACTIONS (2)
  - BLEEDING TIME PROLONGED [None]
  - EPISTAXIS [None]
